FAERS Safety Report 10705286 (Version 1)
Quarter: 2015Q1

REPORT INFORMATION
  Report Type: Spontaneous
  Country: US (occurrence: US)
  Receive Date: 20150112
  Receipt Date: 20150112
  Transmission Date: 20150721
  Serious: Yes (Death)
  Sender: FDA-Public Use
  Company Number: US-BAYER-2015-002711

PATIENT
  Age: 46 Year
  Sex: Male

DRUGS (6)
  1. ROMILAR [Suspect]
     Active Substance: DEXTROMETHORPHAN HYDROBROMIDE
  2. HYDROXYZINE [Suspect]
     Active Substance: HYDROXYZINE\HYDROXYZINE HYDROCHLORIDE
  3. HEROIN [Suspect]
     Active Substance: DIACETYLMORPHINE
  4. ETHANOL [Suspect]
     Active Substance: ALCOHOL
  5. DOXYLAMINE [Suspect]
     Active Substance: DOXYLAMINE
  6. PAROXETINE [Suspect]
     Active Substance: PAROXETINE\PAROXETINE HYDROCHLORIDE

REACTIONS (1)
  - Toxicity to various agents [Fatal]
